FAERS Safety Report 14305094 (Version 1)
Quarter: 2017Q4

REPORT INFORMATION
  Report Type: Report from Study
  Country: JP (occurrence: JP)
  Receive Date: 20171219
  Receipt Date: 20171219
  Transmission Date: 20180321
  Serious: Yes (Life-Threatening, Other)
  Sender: FDA-Public Use
  Company Number: JP-OTSUKA-005283

PATIENT
  Age: 40 Year
  Sex: Male

DRUGS (25)
  1. ARIPIPRAZOLE. [Suspect]
     Active Substance: ARIPIPRAZOLE
     Indication: SCHIZOPHRENIA
     Dosage: 12 MG, BID
     Route: 048
     Dates: start: 20080601, end: 20080611
  2. ARIPIPRAZOLE. [Suspect]
     Active Substance: ARIPIPRAZOLE
     Dosage: 12 MG, BID
     Route: 048
     Dates: start: 20080822, end: 20081211
  3. ZYPREXA ZYDIS [Concomitant]
     Active Substance: OLANZAPINE
     Dosage: 10 MG, QD
     Route: 048
     Dates: start: 20080523, end: 20080611
  4. ZYPREXA ZYDIS [Concomitant]
     Active Substance: OLANZAPINE
     Dosage: 5 MG, QD
     Route: 048
     Dates: start: 20080612, end: 20080619
  5. DEPAKENE [Concomitant]
     Active Substance: VALPROIC ACID
     Dosage: 800 MG, QD
     Route: 048
     Dates: start: 20080627, end: 20080703
  6. DEPAKENE [Concomitant]
     Active Substance: VALPROIC ACID
     Dosage: 400 MG, QD
     Route: 048
     Dates: start: 20080829, end: 20081023
  7. DEPAKENE [Concomitant]
     Active Substance: VALPROIC ACID
     Dosage: 1000 MG, QD
     Route: 048
     Dates: start: 20080622, end: 20080626
  8. DEPAKENE [Concomitant]
     Active Substance: VALPROIC ACID
     Dosage: 600 MG, QD
     Route: 048
     Dates: start: 20080704, end: 20080828
  9. DEPAKENE [Concomitant]
     Active Substance: VALPROIC ACID
     Dosage: 1600 MG, QD
     Route: 048
     Dates: start: 20081218
  10. ARIPIPRAZOLE. [Suspect]
     Active Substance: ARIPIPRAZOLE
     Dosage: 15 MG, BID
     Route: 048
     Dates: start: 20080612, end: 20080731
  11. FLUNITRAZEPAM [Concomitant]
     Active Substance: FLUNITRAZEPAM
     Indication: INSOMNIA
     Dosage: 4 MG, QD
     Route: 048
     Dates: start: 20080419, end: 20080515
  12. DEPAKENE [Concomitant]
     Active Substance: VALPROIC ACID
     Dosage: 600 MG, QD
     Route: 048
     Dates: start: 20081024, end: 20081211
  13. VALPROATE SODIUM. [Suspect]
     Active Substance: VALPROATE SODIUM
     Indication: SCHIZOPHRENIA
     Dosage: 400 MG, UNK (1000MG22JUN-26JUN08;800MG27JUN-03JUL08;600MG04JUL-28-AUG08;400MG29AUG-23OCT08;600MG24O)
     Route: 048
     Dates: start: 20080621, end: 20080621
  14. ARIPIPRAZOLE. [Suspect]
     Active Substance: ARIPIPRAZOLE
     Dosage: 12 MG, QD
     Route: 048
     Dates: start: 20081212
  15. ZYPREXA ZYDIS [Concomitant]
     Active Substance: OLANZAPINE
     Indication: SCHIZOPHRENIA
     Dosage: 20 MG, QD
     Route: 048
     Dates: start: 20080419, end: 20080522
  16. FLUNITRAZEPAM [Concomitant]
     Active Substance: FLUNITRAZEPAM
     Dosage: 3 MG, QD
     Route: 048
     Dates: start: 20080516, end: 20080529
  17. FLUNITRAZEPAM [Concomitant]
     Active Substance: FLUNITRAZEPAM
     Dosage: 4 MG, QD
     Route: 048
     Dates: start: 20080601
  18. DEPAKENE [Concomitant]
     Active Substance: VALPROIC ACID
     Indication: SCHIZOPHRENIA
     Dosage: 400 MG, QD
     Route: 048
     Dates: start: 20080621, end: 20080621
  19. SODIUM PICOSULFATE [Concomitant]
     Active Substance: SODIUM PICOSULFATE
     Indication: PRODUCT USED FOR UNKNOWN INDICATION
     Dosage: 1.5 MG, QD
     Route: 048
     Dates: start: 20090226
  20. ARIPIPRAZOLE. [Suspect]
     Active Substance: ARIPIPRAZOLE
     Dosage: 7 MG, TID
     Route: 048
     Dates: start: 20080809, end: 20080821
  21. DEPAKENE [Concomitant]
     Active Substance: VALPROIC ACID
     Dosage: 800 MG, QD
     Route: 048
     Dates: start: 20081211, end: 20081211
  22. ARIPIPRAZOLE. [Suspect]
     Active Substance: ARIPIPRAZOLE
     Dosage: 9 MG, BID
     Route: 048
     Dates: start: 20080801, end: 20080808
  23. DEPAKENE [Concomitant]
     Active Substance: VALPROIC ACID
     Dosage: 1200 MG, QD
     Route: 048
     Dates: start: 20081212, end: 20081217
  24. LAXOSELIN [Concomitant]
     Indication: PRODUCT USED FOR UNKNOWN INDICATION
     Dosage: 2 ML, QD
     Route: 048
     Dates: start: 20081218, end: 20090225
  25. SOLON [Concomitant]
     Active Substance: SOFALCONE
     Indication: PRODUCT USED FOR UNKNOWN INDICATION
     Dosage: 100 MG, QD
     Route: 048
     Dates: start: 20081212, end: 20090508

REACTIONS (11)
  - Psychiatric symptom [Recovered/Resolved]
  - Drug-induced liver injury [Recovering/Resolving]
  - Delusion [Unknown]
  - Mania [Unknown]
  - Sedation [Recovered/Resolved]
  - Gastrointestinal haemorrhage [Recovered/Resolved]
  - Drug ineffective [Unknown]
  - Suicide attempt [Recovered/Resolved]
  - Back pain [Recovered/Resolved]
  - Vomiting [Recovered/Resolved]
  - Constipation [Recovered/Resolved]

NARRATIVE: CASE EVENT DATE: 20080720
